FAERS Safety Report 16367331 (Version 1)
Quarter: 2019Q2

REPORT INFORMATION
  Report Type: Spontaneous
  Country: US (occurrence: US)
  Receive Date: 20190422
  Receipt Date: 20190422
  Transmission Date: 20190711
  Serious: Yes (Hospitalization)
  Sender: FDA-Public Use
  Company Number: None

PATIENT
  Age: 54 Year
  Sex: Male
  Weight: 119.29 kg

DRUGS (1)
  1. SULFAMETHOXAZOLE/TRIMETHOPRIM [Suspect]
     Active Substance: SULFAMETHOXAZOLE\TRIMETHOPRIM
     Indication: UPPER RESPIRATORY TRACT INFECTION
     Route: 048
     Dates: start: 20181219, end: 20181226

REACTIONS (9)
  - Pyrexia [None]
  - Myalgia [None]
  - Nausea [None]
  - Vomiting [None]
  - Cholangitis [None]
  - Drug-induced liver injury [None]
  - Abdominal pain lower [None]
  - Hyperbilirubinaemia [None]
  - Pancreatitis acute [None]

NARRATIVE: CASE EVENT DATE: 20181219
